FAERS Safety Report 16810770 (Version 1)
Quarter: 2019Q4

REPORT INFORMATION
  Report Type: Spontaneous
  Country: US (occurrence: US)
  Receive Date: 20190916
  Receipt Date: 20190916
  Transmission Date: 20200122
  Serious: Yes (Disabling)
  Sender: FDA-Public Use
  Company Number: None

PATIENT
  Age: 56 Year
  Sex: Male
  Weight: 82.35 kg

DRUGS (10)
  1. BACLOFEN. [Concomitant]
     Active Substance: BACLOFEN
  2. AMITRIPTOLINE [Concomitant]
  3. DIAZEPAM. [Concomitant]
     Active Substance: DIAZEPAM
  4. CIPROFLOXACIN 750MG. TABLETS [Suspect]
     Active Substance: CIPROFLOXACIN
     Indication: PROCEDURAL COMPLICATION
     Dosage: ?          QUANTITY:85 TABLET(S);?
     Route: 048
  5. CALCIUM+D3 [Concomitant]
  6. OXYCODONE [Concomitant]
     Active Substance: OXYCODONE
  7. VITAMIN B12 [Concomitant]
     Active Substance: CYANOCOBALAMIN
  8. CIPROFLOXACIN 750MG. TABLETS [Suspect]
     Active Substance: CIPROFLOXACIN
     Indication: ESCHERICHIA INFECTION
     Dosage: ?          QUANTITY:85 TABLET(S);?
     Route: 048
  9. NEURONTIN [Concomitant]
     Active Substance: GABAPENTIN
  10. VITAMIN C [Concomitant]
     Active Substance: ASCORBIC ACID

REACTIONS (4)
  - Tendon disorder [None]
  - Asthenia [None]
  - Tendon pain [None]
  - Ligament sprain [None]

NARRATIVE: CASE EVENT DATE: 20180601
